FAERS Safety Report 21017292 (Version 1)
Quarter: 2022Q2

REPORT INFORMATION
  Report Type: Spontaneous
  Country: US (occurrence: None)
  Receive Date: 20220627
  Receipt Date: 20220627
  Transmission Date: 20220721
  Serious: Yes (Hospitalization)
  Sender: FDA-Public Use
  Company Number: None

PATIENT
  Age: 75 Year
  Sex: Male
  Weight: 131 kg

DRUGS (9)
  1. PROMACTA [Suspect]
     Active Substance: ELTROMBOPAG OLAMINE
     Indication: Aplastic anaemia
     Dosage: FREQUENCY : DAILY;?
     Route: 048
     Dates: start: 20200312, end: 20220620
  2. CYCLOSPORINE [Suspect]
     Active Substance: CYCLOSPORINE
     Indication: Aplastic anaemia
     Dosage: FREQUENCY : TWICE A DAY;?
     Route: 048
     Dates: start: 20200312, end: 20220620
  3. VITAMIN B12 [Concomitant]
     Active Substance: CYANOCOBALAMIN
     Dates: start: 20200311
  4. METFORMIN [Concomitant]
     Active Substance: METFORMIN HYDROCHLORIDE
     Dates: start: 20200406
  5. ROSUVASTATIN [Concomitant]
     Active Substance: ROSUVASTATIN
     Dates: start: 20200720
  6. LISINOPRIL [Concomitant]
     Dates: start: 20200720
  7. ACETAMINOPHEN [Concomitant]
     Active Substance: ACETAMINOPHEN
     Dates: start: 20200803
  8. CELECOXIB [Concomitant]
     Dates: start: 20211207
  9. MAGNESIUM [Concomitant]
     Active Substance: MAGNESIUM
     Dates: start: 20220502

REACTIONS (1)
  - Renal failure [None]

NARRATIVE: CASE EVENT DATE: 20220620
